FAERS Safety Report 16698229 (Version 2)
Quarter: 2019Q3

REPORT INFORMATION
  Report Type: Report from Study
  Country: None (occurrence: US)
  Receive Date: 20190813
  Receipt Date: 20190826
  Transmission Date: 20191004
  Serious: Yes (Hospitalization, Other)
  Sender: FDA-Public Use
  Company Number: US-ABBVIE-19K-163-2882919-00

PATIENT
  Age: 64 Year
  Sex: Male
  Weight: 136.2 kg

DRUGS (1)
  1. HUMIRA [Suspect]
     Active Substance: ADALIMUMAB
     Indication: PSORIATIC ARTHROPATHY
     Route: 058
     Dates: start: 2009

REACTIONS (12)
  - Joint space narrowing [Unknown]
  - Hypertension [Unknown]
  - Psoriatic arthropathy [Not Recovered/Not Resolved]
  - Myocardial infarction [Recovered/Resolved]
  - Back pain [Recovering/Resolving]
  - Gait disturbance [Unknown]
  - Back disorder [Not Recovered/Not Resolved]
  - Mobility decreased [Unknown]
  - Intervertebral disc protrusion [Recovered/Resolved]
  - Lumbar spinal stenosis [Not Recovered/Not Resolved]
  - Intervertebral disc protrusion [Recovered/Resolved]
  - Intervertebral disc protrusion [Recovered/Resolved]

NARRATIVE: CASE EVENT DATE: 2013
